FAERS Safety Report 5373900-6 (Version None)
Quarter: 2007Q2

REPORT INFORMATION
  Report Type: 
  Country: None (occurrence: None)
  Receive Date: 20070615
  Receipt Date: 20061120
  Transmission Date: 20071010
  Serious: Yes (Other)
  Sender: FDA-Public Use
  Company Number: 200611419US

PATIENT
  Age: 16 Year
  Sex: Female

DRUGS (4)
  1. LANTUS [Suspect]
     Indication: DIABETES MELLITUS INSULIN-DEPENDENT
     Dosage: 38 IU HS
     Dates: start: 20040801
  2. OPTICLIK [Suspect]
     Indication: DIABETES MELLITUS INSULIN-DEPENDENT
  3. HUMALOG [Concomitant]
  4. CHEWABLE VITAMINS [Concomitant]

REACTIONS (1)
  - HYPERGLYCAEMIA [None]
